FAERS Safety Report 4479636-8 (Version None)
Quarter: 2004Q4

REPORT INFORMATION
  Report Type: 
  Country: None (occurrence: None)
  Receive Date: 20041018
  Receipt Date: 20041005
  Transmission Date: 20050328
  Serious: Yes (Hospitalization, Other)
  Sender: FDA-Public Use
  Company Number: 2004075231

PATIENT
  Age: 56 Year
  Sex: Male

DRUGS (7)
  1. ATARAX [Suspect]
     Indication: ILL-DEFINED DISORDER
     Dosage: 300 MG (100 MG, 3 IN 1 D), ORAL
     Route: 048
     Dates: end: 20040912
  2. NOCTRAN 10 (ACEPROMAZINE, ACEPROMETAZINE, CLORAZEPATE DIPOTASSIUM) [Suspect]
     Indication: ILL-DEFINED DISORDER
     Dosage: ONE TABLET DAILY, ORAL
     Route: 048
     Dates: end: 20040912
  3. OMEPRAZOLE [Concomitant]
  4. SIMVASTATIN [Concomitant]
  5. BIPERIDEN HYDROCHLORIDE TAB [Concomitant]
  6. CLONAZEPAM [Suspect]
     Indication: ILL-DEFINED DISORDER
     Dosage: 20 GTT (IN 3 DOSES), ORAL
     Route: 048
     Dates: end: 20040912
  7. VALPROATE SODIUM [Suspect]
     Indication: ILL-DEFINED DISORDER
     Dosage: 1500 MG (500 MG, 3 IN 1 D), ORAL
     Route: 048

REACTIONS (7)
  - CEREBRAL ATROPHY [None]
  - CONFUSIONAL STATE [None]
  - DISORIENTATION [None]
  - NORMOCHROMIC NORMOCYTIC ANAEMIA [None]
  - POLYNEUROPATHY [None]
  - RENAL FAILURE [None]
  - SUBDURAL HAEMATOMA [None]
